FAERS Safety Report 5244332-6 (Version None)
Quarter: 2007Q1

REPORT INFORMATION
  Report Type: 
  Country: None (occurrence: None)
  Receive Date: 20070222
  Receipt Date: 20070213
  Transmission Date: 20070707
  Serious: Yes (Hospitalization)
  Sender: FDA-Public Use
  Company Number: FR-ELI_LILLY_AND_COMPANY-FR200612004549

PATIENT
  Age: 91 Year
  Sex: Female

DRUGS (8)
  1. FORTEO [Suspect]
     Indication: OSTEOPOROSIS
     Dosage: 20 UG, DAILY (1/D)
     Route: 058
     Dates: start: 20060430, end: 20061206
  2. KARDEGIC [Concomitant]
     Dosage: 100 MG, UNK
     Route: 048
  3. PRAVASTATIN [Concomitant]
     Indication: HYPERCHOLESTEROLAEMIA
     Dosage: 1 D/F, EACH EVENING
     Route: 048
  4. ZESTRIL [Concomitant]
     Indication: HYPERTENSION
     Dosage: 1 D/F, EACH MORNING
     Route: 048
  5. LASIX [Concomitant]
     Indication: HYPERTENSION
     Dosage: 40 MG, EACH MORNING
     Route: 048
  6. COLCHICINE [Concomitant]
     Indication: GOUT
  7. NEBILOX [Concomitant]
     Dosage: 5 MG, DAILY (1/D)
     Route: 048
  8. DI-ACTANE [Concomitant]

REACTIONS (3)
  - CARDIAC FAILURE [None]
  - HYPERKALAEMIA [None]
  - PULMONARY OEDEMA [None]
